FAERS Safety Report 7078235-1 (Version None)
Quarter: 2010Q4

REPORT INFORMATION
  Report Type: 
  Country: None (occurrence: None)
  Receive Date: 20101102
  Receipt Date: 20101102
  Transmission Date: 20110411
  Serious: Yes (Other)
  Sender: FDA-Public Use
  Company Number: JP-JNJFOC-20100707125

PATIENT
  Age: 6 Year
  Sex: Male

DRUGS (5)
  1. NIZORAL [Suspect]
     Indication: CANDIDA NAPPY RASH
     Route: 061
  2. ANTEBATE [Concomitant]
     Route: 062
  3. RINDERON VG [Concomitant]
     Route: 062
  4. HIRUDOID CREAM [Concomitant]
     Route: 062
  5. PROTOPIC [Concomitant]
     Route: 062

REACTIONS (4)
  - ANAPHYLACTOID REACTION [None]
  - DYSPNOEA [None]
  - GENERALISED ERYTHEMA [None]
  - RASH [None]
